FAERS Safety Report 24177566 (Version 2)
Quarter: 2024Q3

REPORT INFORMATION
  Report Type: Report from Study
  Country: ES (occurrence: ES)
  Receive Date: 20240806
  Receipt Date: 20240808
  Transmission Date: 20241016
  Serious: Yes (Hospitalization)
  Sender: SANOFI AVENTIS
  Company Number: ES-REGENERON PHARMACEUTICALS, INC.-2024-101425

PATIENT
  Age: 45 Year
  Sex: Female
  Weight: 67.5 kg

DRUGS (2)
  1. UBAMATAMAB [Suspect]
     Active Substance: UBAMATAMAB
     Indication: Ovarian cancer
     Dosage: 1 MG (C1D1)
     Route: 042
     Dates: start: 20240722, end: 20240722
  2. SARILUMAB [Suspect]
     Active Substance: SARILUMAB
     Indication: Ovarian cancer
     Dosage: 350 MG, SINGLE (SARILUMAB COHORT 1E)
     Route: 042
     Dates: start: 20240722, end: 20240722

REACTIONS (1)
  - Abdominal pain [Not Recovered/Not Resolved]

NARRATIVE: CASE EVENT DATE: 20240722
